FAERS Safety Report 5493079-X (Version None)
Quarter: 2007Q4

REPORT INFORMATION
  Report Type: 
  Country: None (occurrence: None)
  Receive Date: 20071019
  Receipt Date: 20071010
  Transmission Date: 20080405
  Serious: No
  Sender: FDA-Public Use
  Company Number: TPA2007A02079

PATIENT
  Age: 85 Year
  Sex: Female
  Weight: 61.6892 kg

DRUGS (5)
  1. ROZEREM [Suspect]
     Indication: INSOMNIA
     Dosage: 8 MG, QHS, PER ORAL; 16 MG, QHS, PER ORAL
     Route: 048
     Dates: start: 20071007, end: 20071008
  2. ROZEREM [Suspect]
     Indication: INSOMNIA
     Dosage: 8 MG, QHS, PER ORAL; 16 MG, QHS, PER ORAL
     Route: 048
     Dates: start: 20071009, end: 20071009
  3. ASPIRIN [Concomitant]
  4. METOPROLOL TARTRATE [Concomitant]
  5. VERAPAMIL [Concomitant]

REACTIONS (5)
  - DRUG INEFFECTIVE [None]
  - FATIGUE [None]
  - INCORRECT DOSE ADMINISTERED [None]
  - INSOMNIA [None]
  - SOMNOLENCE [None]
